FAERS Safety Report 15161893 (Version 1)
Quarter: 2018Q3

REPORT INFORMATION
  Report Type: Report from Study
  Country: US (occurrence: US)
  Receive Date: 20180718
  Receipt Date: 20180718
  Transmission Date: 20181010
  Serious: No
  Sender: FDA-Public Use
  Company Number: US-AMGEN-USASP2014030716

PATIENT
  Age: 63 Year
  Sex: Female

DRUGS (2)
  1. METHOTREXATE. [Concomitant]
     Active Substance: METHOTREXATE
     Dosage: UNK
     Route: 048
  2. ENBREL [Suspect]
     Active Substance: ETANERCEPT
     Indication: RHEUMATOID ARTHRITIS
     Dosage: 50 MG, QWK
     Route: 065
     Dates: start: 20100101

REACTIONS (11)
  - Increased tendency to bruise [Recovered/Resolved]
  - Erythema [Recovered/Resolved]
  - Injection site erythema [Recovered/Resolved]
  - Infected dermal cyst [Recovered/Resolved]
  - Skin discolouration [Recovered/Resolved]
  - Injection site pruritus [Recovered/Resolved]
  - Swelling [Recovered/Resolved]
  - Injection site pain [Recovered/Resolved]
  - Keloid scar [Not Recovered/Not Resolved]
  - Injury [Recovered/Resolved]
  - Wrong technique in product usage process [Recovered/Resolved]

NARRATIVE: CASE EVENT DATE: 201310
